FAERS Safety Report 10038978 (Version 2)
Quarter: 2014Q2

REPORT INFORMATION
  Report Type: Spontaneous
  Country: US (occurrence: US)
  Receive Date: 20140326
  Receipt Date: 20140502
  Transmission Date: 20141212
  Serious: Yes (Other)
  Sender: FDA-Public Use
  Company Number: US-GILEAD-2014-0097370

PATIENT
  Sex: Female

DRUGS (3)
  1. LETAIRIS [Suspect]
     Indication: PRODUCT USED FOR UNKNOWN INDICATION
     Dosage: 5 MG, QD
     Route: 065
     Dates: start: 20100813
  2. FLUTICASONE [Concomitant]
     Indication: SINUS DISORDER
  3. SPIRIVA [Concomitant]
     Indication: SINUS DISORDER

REACTIONS (3)
  - Pneumonia [Unknown]
  - Bronchitis [Unknown]
  - Sinusitis [Unknown]
